FAERS Safety Report 8314827 (Version 3)
Quarter: 2012Q4

REPORT INFORMATION
  Report Type: 
  Country: JP (occurrence: JP)
  Receive Date: 20111229
  Receipt Date: 20121031
  Transmission Date: 20130627
  Serious: Yes (Death, Hospitalization, Other)
  Sender: FDA-Public Use
  Company Number: JP-BAYER-2011-123949

PATIENT
  Age: 68 Year
  Sex: Male
  Weight: 44 kg

DRUGS (2)
  1. NEXAVAR [Suspect]
     Indication: CARCINOMA HEPATOCELLULAR
     Dosage: 400 mg, BID
     Route: 048
     Dates: start: 20110509, end: 20110607
  2. NEXAVAR [Suspect]
     Indication: CARCINOMA HEPATOCELLULAR
     Dosage: Daily dose: 400 mg
     Route: 048
     Dates: start: 20110608, end: 20111130

REACTIONS (4)
  - Ascites [Unknown]
  - Interstitial lung disease [Recovering/Resolving]
  - Hepatocellular carcinoma [Fatal]
  - Hepatic function abnormal [Recovering/Resolving]
